FAERS Safety Report 11913228 (Version 2)
Quarter: 2016Q1

REPORT INFORMATION
  Report Type: Report from Study
  Country: US (occurrence: US)
  Receive Date: 20160113
  Receipt Date: 20160229
  Transmission Date: 20160526
  Serious: No
  Sender: FDA-Public Use
  Company Number: PHEH2016US000999

PATIENT
  Sex: Female

DRUGS (1)
  1. ZYKADIA [Suspect]
     Active Substance: CERITINIB
     Indication: LUNG NEOPLASM MALIGNANT
     Dosage: 5 MG, QD
     Route: 048
     Dates: start: 20151218

REACTIONS (3)
  - Rhinorrhoea [Unknown]
  - Fatigue [Unknown]
  - Nausea [Unknown]
